FAERS Safety Report 12291102 (Version 1)
Quarter: 2016Q2

REPORT INFORMATION
  Report Type: Report from Study
  Country: US (occurrence: US)
  Receive Date: 20160421
  Receipt Date: 20160421
  Transmission Date: 20160815
  Serious: Yes (Hospitalization)
  Sender: FDA-Public Use
  Company Number: US-JNJFOC-20160419282

PATIENT
  Sex: Male

DRUGS (12)
  1. IMBRUVICA [Suspect]
     Active Substance: IBRUTINIB
     Indication: CHRONIC LYMPHOCYTIC LEUKAEMIA
     Route: 048
     Dates: start: 201601
  2. MELATONIN [Concomitant]
     Active Substance: MELATONIN
  3. LEVOTHYROXINE. [Concomitant]
     Active Substance: LEVOTHYROXINE
  4. MOXIFLOXACIN. [Concomitant]
     Active Substance: MOXIFLOXACIN
  5. HYDROCODONE [Concomitant]
     Active Substance: HYDROCODONE
  6. ACETAMINOPHEN. [Concomitant]
     Active Substance: ACETAMINOPHEN
  7. MINOCYCLINE [Concomitant]
     Active Substance: MINOCYCLINE\MINOCYCLINE HYDROCHLORIDE
  8. PRAVASTATIN [Concomitant]
     Active Substance: PRAVASTATIN\PRAVASTATIN SODIUM
  9. VITAMIN D3 [Concomitant]
     Active Substance: CHOLECALCIFEROL
  10. ATENOLOL. [Concomitant]
     Active Substance: ATENOLOL
  11. LYRICA [Concomitant]
     Active Substance: PREGABALIN
  12. TRAZODONE [Concomitant]
     Active Substance: TRAZODONE HYDROCHLORIDE

REACTIONS (7)
  - Herpes zoster [Unknown]
  - Ankle fracture [Unknown]
  - Decreased appetite [Unknown]
  - Asthenia [Unknown]
  - Fall [Unknown]
  - Post herpetic neuralgia [Unknown]
  - Pulmonary mass [Unknown]

NARRATIVE: CASE EVENT DATE: 2016
